FAERS Safety Report 7005062-3 (Version None)
Quarter: 2010Q3

REPORT INFORMATION
  Report Type: 
  Country: None (occurrence: None)
  Receive Date: 20100921
  Receipt Date: 20100909
  Transmission Date: 20110219
  Serious: Yes (Other)
  Sender: FDA-Public Use
  Company Number: PHHY2010BR33043

PATIENT
  Sex: Male

DRUGS (1)
  1. DIOVAN [Suspect]
     Dosage: 320 MG, UNK

REACTIONS (4)
  - BLOOD PRESSURE DECREASED [None]
  - FATIGUE [None]
  - SWELLING [None]
  - THROMBOSIS [None]
